FAERS Safety Report 25396865 (Version 2)
Quarter: 2025Q4

REPORT INFORMATION
  Report Type: Spontaneous
  Country: GB (occurrence: GB)
  Receive Date: 20250604
  Receipt Date: 20251214
  Transmission Date: 20260119
  Serious: Yes (Hospitalization, Other)
  Sender: AMGEN
  Company Number: GB-009507513-2311GBR011281

PATIENT
  Age: 68 Year
  Sex: Female
  Weight: 89 kg

DRUGS (40)
  1. FILGRASTIM [Suspect]
     Active Substance: FILGRASTIM
     Indication: Diffuse large B-cell lymphoma
     Dosage: 30 MILLION UNIT (30MU)
     Route: 065
     Dates: start: 20231124, end: 20240226
  2. RITUXIMAB [Suspect]
     Active Substance: RITUXIMAB
     Indication: Diffuse large B-cell lymphoma
     Dosage: 700 MILLIGRAM
     Route: 065
     Dates: start: 20231116, end: 20231116
  3. RITUXIMAB [Suspect]
     Active Substance: RITUXIMAB
     Dosage: 700 MILLIGRAM
     Route: 065
     Dates: start: 20231207, end: 20231207
  4. RITUXIMAB [Suspect]
     Active Substance: RITUXIMAB
     Dosage: 700 MILLIGRAM
     Route: 065
     Dates: start: 20231229, end: 20231229
  5. KEYTRUDA [Suspect]
     Active Substance: PEMBROLIZUMAB
     Indication: Diffuse large B-cell lymphoma
     Dosage: 200 MILLIGRAM
     Route: 065
     Dates: start: 20231116, end: 20231116
  6. KEYTRUDA [Suspect]
     Active Substance: PEMBROLIZUMAB
     Dosage: 200 MILLIGRAM
     Route: 065
     Dates: start: 20231207, end: 20231207
  7. KEYTRUDA [Suspect]
     Active Substance: PEMBROLIZUMAB
     Dosage: 200 MILLIGRAM
     Route: 065
     Dates: start: 20231229, end: 20231229
  8. IFOSFAMIDE [Suspect]
     Active Substance: IFOSFAMIDE
     Indication: Diffuse large B-cell lymphoma
     Dosage: 4480 MILLIGRAM
     Route: 065
     Dates: start: 20231117, end: 20231117
  9. IFOSFAMIDE [Suspect]
     Active Substance: IFOSFAMIDE
     Dosage: 4480 MILLIGRAM
     Route: 065
     Dates: start: 20231210, end: 20231210
  10. IFOSFAMIDE [Suspect]
     Active Substance: IFOSFAMIDE
     Dosage: 4480 MILLIGRAM
     Route: 065
     Dates: start: 20240101, end: 20240101
  11. CARBOPLATIN [Suspect]
     Active Substance: CARBOPLATIN
     Indication: Diffuse large B-cell lymphoma
     Dosage: 450 MILLIGRAM
     Route: 065
     Dates: start: 20231117, end: 20231117
  12. CARBOPLATIN [Suspect]
     Active Substance: CARBOPLATIN
     Indication: Diffuse large B-cell lymphoma
     Dosage: 450 MILLIGRAM
     Route: 065
     Dates: start: 20231208, end: 20231208
  13. CARBOPLATIN [Suspect]
     Active Substance: CARBOPLATIN
     Dosage: 330 MILLIGRAM
     Route: 065
     Dates: start: 20231230, end: 20231230
  14. ETOPOSIDE [Suspect]
     Active Substance: ETOPOSIDE
     Indication: Diffuse large B-cell lymphoma
     Dosage: 180 MILLIGRAM
     Route: 065
     Dates: start: 20231118, end: 20251118
  15. ETOPOSIDE [Suspect]
     Active Substance: ETOPOSIDE
     Dosage: 180 MILLIGRAM
     Route: 065
     Dates: start: 20231210, end: 20231210
  16. ETOPOSIDE [Suspect]
     Active Substance: ETOPOSIDE
     Dosage: 180 MILLIGRAM
     Route: 065
     Dates: start: 20231231, end: 20231231
  17. ETOPOSIDE [Suspect]
     Active Substance: ETOPOSIDE
     Dosage: 296 MILLIGRAM
     Route: 065
     Dates: start: 20240209, end: 20240214
  18. CARMUSTINE [Suspect]
     Active Substance: CARMUSTINE
     Indication: Diffuse large B-cell lymphoma
     Dosage: 400 MILLIGRAM
     Route: 065
     Dates: start: 20240209, end: 20240214
  19. CYTARABINE [Suspect]
     Active Substance: CYTARABINE
     Indication: Diffuse large B-cell lymphoma
     Dosage: 720 MILLIGRAM
     Route: 065
     Dates: start: 20240209, end: 20240214
  20. PLERIXAFOR [Suspect]
     Active Substance: PLERIXAFOR
     Indication: Diffuse large B-cell lymphoma
     Dosage: 20 MILLIGRAM
     Route: 065
     Dates: start: 20240110, end: 20240111
  21. ACETAMINOPHEN [Suspect]
     Active Substance: ACETAMINOPHEN
     Indication: Diffuse large B-cell lymphoma
     Dosage: 1000 MILLIGRAM, QD
     Route: 048
     Dates: start: 20190520
  22. ACETAMINOPHEN [Suspect]
     Active Substance: ACETAMINOPHEN
     Dosage: TOTAL DAILY DOSE: 1000 MILLIGRAM, BID
     Route: 048
     Dates: start: 20240617
  23. SIMVASTATIN [Suspect]
     Active Substance: SIMVASTATIN
     Indication: Diffuse large B-cell lymphoma
     Dosage: 40 MILLIGRAM, QD
     Route: 048
     Dates: start: 20130508, end: 20240820
  24. INDAPAMIDE [Concomitant]
     Active Substance: INDAPAMIDE
     Dosage: 2.5 MILLIGRAM, QD
     Route: 048
     Dates: start: 20180730, end: 20240208
  25. NOVORAPID [Concomitant]
     Active Substance: INSULIN ASPART
     Dosage: TOTAL DAILY DOSE: VARIABLE 100 UNITS/ML
     Route: 058
     Dates: start: 20070313, end: 20240303
  26. OMEPRAZOLE [Concomitant]
     Active Substance: OMEPRAZOLE
     Dosage: 20 MILLIGRAM, QD
     Route: 048
     Dates: start: 20230821, end: 20240303
  27. DAPAGLIFLOZIN [Concomitant]
     Active Substance: DAPAGLIFLOZIN
     Dosage: 10 MILLIGRAM, QD
     Route: 048
     Dates: start: 20210113, end: 20240213
  28. GLUCOPHAGE [Concomitant]
     Active Substance: METFORMIN HYDROCHLORIDE
     Dosage: 1000 MILLIGRAM, QD
     Route: 048
     Dates: start: 20161124, end: 20240301
  29. TRESIBA [Concomitant]
     Active Substance: INSULIN DEGLUDEC
     Dosage: TOTAL DAILY DOSE: VARIABLE 200 UNITS/ML
     Route: 058
     Dates: start: 20181129, end: 20240301
  30. CHOLECALCIFEROL [Concomitant]
     Active Substance: CHOLECALCIFEROL
     Dosage: UNK
     Route: 065
     Dates: start: 20240208, end: 20240303
  31. ACYCLOVIR [Concomitant]
     Active Substance: ACYCLOVIR
     Dosage: UNK
     Route: 065
  32. COTRIMOXAZOLE [Concomitant]
     Active Substance: SULFAMETHOXAZOLE\TRIMETHOPRIM
     Dosage: UNK
     Route: 065
  33. CODEINE PHOSPHATE [Concomitant]
     Active Substance: CODEINE PHOSPHATE
     Dosage: UNK
     Route: 065
  34. FAMOTIDINE [Concomitant]
     Active Substance: FAMOTIDINE
     Dosage: UNK
     Route: 065
  35. BUTYLSCOPOLAMINE BROMIDE [Concomitant]
     Active Substance: BUTYLSCOPOLAMINE BROMIDE
     Dosage: UNK
     Route: 065
  36. LOPERAMIDE [Concomitant]
     Active Substance: LOPERAMIDE
     Dosage: UNK
     Route: 065
  37. METFORMIN [Concomitant]
     Active Substance: METFORMIN HYDROCHLORIDE
     Dosage: UNK
     Route: 065
  38. ONDANSETRON HYDROCHLORIDE [Concomitant]
     Active Substance: ONDANSETRON HYDROCHLORIDE
     Dosage: UNK
     Route: 065
  39. OXETACAINE [Concomitant]
     Active Substance: OXETHAZAINE
     Dosage: UNK
     Route: 065
  40. POTASSIUM BICARBONATE\POTASSIUM CHLORIDE [Concomitant]
     Active Substance: POTASSIUM BICARBONATE\POTASSIUM CHLORIDE
     Dosage: UNK
     Route: 065

REACTIONS (6)
  - Colitis [Recovered/Resolved with Sequelae]
  - Dyspnoea [Recovered/Resolved]
  - Acute kidney injury [Recovered/Resolved with Sequelae]
  - Acute respiratory distress syndrome [Not Recovered/Not Resolved]
  - Alanine aminotransferase increased [Not Recovered/Not Resolved]
  - Mobility decreased [Not Recovered/Not Resolved]

NARRATIVE: CASE EVENT DATE: 20231123
